FAERS Safety Report 23697539 (Version 1)
Quarter: 2024Q2

REPORT INFORMATION
  Report Type: Spontaneous
  Country: JP (occurrence: JP)
  Receive Date: 20240402
  Receipt Date: 20240402
  Transmission Date: 20240716
  Serious: Yes (Other)
  Sender: FDA-Public Use
  Company Number: JP-JNJFOC-20240384346

PATIENT
  Age: 5 Decade
  Sex: Female

DRUGS (5)
  1. ITRACONAZOLE [Interacting]
     Active Substance: ITRACONAZOLE
     Indication: Infection prophylaxis
     Dosage: DOSE UNKNOWN
     Route: 048
  2. ARSENIC TRIOXIDE [Interacting]
     Active Substance: ARSENIC TRIOXIDE
     Indication: Acute myeloid leukaemia recurrent
     Dosage: DOSE UNKNOWN
     Route: 065
  3. ARSENIC TRIOXIDE [Interacting]
     Active Substance: ARSENIC TRIOXIDE
     Indication: Acute myeloid leukaemia recurrent
     Dosage: DOSE UNKNOWN
     Route: 065
  4. TRETINOIN [Concomitant]
     Active Substance: TRETINOIN
     Indication: Acute myeloid leukaemia recurrent
     Dosage: DOSE UNKNOWN
     Route: 048
  5. MICAFUNGIN SODIUM [Concomitant]
     Active Substance: MICAFUNGIN SODIUM
     Indication: Infection prophylaxis
     Dosage: DOSE UNKNOWN
     Route: 065

REACTIONS (2)
  - Electrocardiogram QT prolonged [Recovering/Resolving]
  - Drug interaction [Unknown]
